FAERS Safety Report 18920595 (Version 6)
Quarter: 2021Q4

REPORT INFORMATION
  Report Type: Report from Study
  Country: PE (occurrence: PE)
  Receive Date: 20210222
  Receipt Date: 20211201
  Transmission Date: 20220304
  Serious: Yes (Life-Threatening, Other)
  Sender: FDA-Public Use
  Company Number: PE-TAKEDA-2021TUS010747

PATIENT
  Age: 70 Year
  Sex: Male

DRUGS (1)
  1. IXAZOMIB [Suspect]
     Active Substance: IXAZOMIB
     Indication: Plasma cell myeloma
     Dosage: 4 MILLIGRAM, 1/WEEK
     Route: 048
     Dates: start: 20200217

REACTIONS (13)
  - Organ failure [Unknown]
  - Haemoglobin decreased [Unknown]
  - Intestinal obstruction [Recovering/Resolving]
  - Abdominal hernia obstructive [Recovering/Resolving]
  - Inguinal hernia [Recovering/Resolving]
  - Light chain analysis abnormal [Unknown]
  - Back pain [Unknown]
  - Constipation [Unknown]
  - Diarrhoea [Unknown]
  - Platelet count decreased [Unknown]
  - Groin pain [Recovering/Resolving]
  - Blood uric acid increased [Unknown]
  - Blood creatinine increased [Unknown]

NARRATIVE: CASE EVENT DATE: 20210424
